FAERS Safety Report 11448709 (Version 1)
Quarter: 2015Q3

REPORT INFORMATION
  Report Type: Spontaneous
  Country: US (occurrence: US)
  Receive Date: 20150902
  Receipt Date: 20150902
  Transmission Date: 20151125
  Serious: No
  Sender: FDA-Public Use
  Company Number: US-PFIZER INC-2015279450

PATIENT
  Age: 53 Year
  Sex: Female

DRUGS (2)
  1. DICLOFENAC EPOLAMINE [Suspect]
     Active Substance: DICLOFENAC EPOLAMINE
     Indication: RHEUMATOID ARTHRITIS
     Dosage: UNK
  2. RELAFEN [Suspect]
     Active Substance: NABUMETONE
     Indication: RHEUMATOID ARTHRITIS
     Dosage: UNK

REACTIONS (1)
  - Drug ineffective for unapproved indication [Unknown]
